FAERS Safety Report 8805379 (Version 1)
Quarter: 2012Q4

REPORT INFORMATION
  Report Type: 
  Country: MY (occurrence: MY)
  Receive Date: 20120924
  Receipt Date: 20120924
  Transmission Date: 20130627
  Serious: Yes (Hospitalization)
  Sender: FDA-Public Use
  Company Number: PHHO2004MY17673

PATIENT
  Age: 44 None
  Sex: Female

DRUGS (2)
  1. GLIVEC [Suspect]
     Indication: GASTROINTESTINAL STROMAL TUMOUR
     Dates: start: 20040727
  2. GLIVEC [Suspect]
     Dosage: 300 mg, QD
     Route: 048
     Dates: start: 20040830, end: 20041110

REACTIONS (7)
  - Hepatotoxicity [Recovering/Resolving]
  - Jaundice [Recovering/Resolving]
  - Blood alkaline phosphatase increased [Recovering/Resolving]
  - Alanine aminotransferase increased [Recovering/Resolving]
  - Blood bilirubin increased [Recovering/Resolving]
  - Metastases to liver [Recovering/Resolving]
  - Abdominal discomfort [Recovering/Resolving]
